FAERS Safety Report 18728442 (Version 2)
Quarter: 2021Q1

REPORT INFORMATION
  Report Type: Spontaneous
  Country: GB (occurrence: GB)
  Receive Date: 20210112
  Receipt Date: 20210127
  Transmission Date: 20210419
  Serious: Yes (Other)
  Sender: FDA-Public Use
  Company Number: GB-TEVA-2020-GB-1865558

PATIENT
  Age: 65 Year
  Sex: Female
  Weight: 62 kg

DRUGS (15)
  1. LANSOPRAZOLE. [Concomitant]
     Active Substance: LANSOPRAZOLE
     Dosage: 1DF
     Dates: start: 20191122
  2. VENTOLIN [Concomitant]
     Active Substance: ALBUTEROL SULFATE
     Dosage: 8 DOSAGE FORMS DAILY;  PUFFS. FOUR TIMES A DAY
     Dates: start: 20200702
  3. CETIRIZINE [Concomitant]
     Active Substance: CETIRIZINE HYDROCHLORIDE
     Dosage: 1DF
     Dates: start: 20181218
  4. BISOPROLOL [Concomitant]
     Active Substance: BISOPROLOL
     Dosage: 1 DOSAGE FORMS DAILY; IN THE MORNING
     Dates: start: 20200907, end: 20200930
  5. COCODAMOL [Concomitant]
     Active Substance: ACETAMINOPHEN\CODEINE PHOSPHATE
     Dosage: 2 DOSAGE FORMS DAILY;  AT NIGHT
     Dates: start: 20200325
  6. PROCHLORPERAZINE. [Concomitant]
     Active Substance: PROCHLORPERAZINE
     Dosage: 3 DOSAGE FORMS DAILY;  THREE TIMES A DAY
     Dates: start: 20201120, end: 20201127
  7. LEVOTHYROXINE. [Concomitant]
     Active Substance: LEVOTHYROXINE
     Dosage: 1 DOSAGE FORMS DAILY;   IN THE MORNING
     Dates: start: 20200316
  8. ATORVASTATIN [Concomitant]
     Active Substance: ATORVASTATIN
     Dosage: 1DF
     Dates: start: 20200408
  9. FOLIC ACID. [Concomitant]
     Active Substance: FOLIC ACID
     Dosage: APART FROM DAY TAKES METHOTREXATE, 1DF
     Dates: start: 20190123
  10. APIXABAN [Concomitant]
     Active Substance: APIXABAN
     Dosage: 2DF
     Dates: start: 20200907
  11. SERETIDE [Concomitant]
     Active Substance: FLUTICASONE PROPIONATE\SALMETEROL XINAFOATE
     Dosage: PUFFS, 4DF
     Dates: start: 20200702
  12. AMOXICILLIN. [Concomitant]
     Active Substance: AMOXICILLIN
     Dosage: 3DF
     Dates: start: 20201117, end: 20201124
  13. METHOTREXATE. [Concomitant]
     Active Substance: METHOTREXATE
     Dosage: 17.5MG
     Route: 048
     Dates: start: 20200702
  14. PREDNISOLONE. [Concomitant]
     Active Substance: PREDNISOLONE
     Dosage: 4DF
     Route: 048
     Dates: start: 20201214
  15. DILTIAZEM. [Suspect]
     Active Substance: DILTIAZEM
     Indication: ATRIAL FIBRILLATION
     Dosage: 120MG
     Route: 048
     Dates: start: 20201208

REACTIONS (3)
  - Rash [Unknown]
  - Hypersensitivity [Unknown]
  - Swelling face [Unknown]

NARRATIVE: CASE EVENT DATE: 20201214
